FAERS Safety Report 11486665 (Version 1)
Quarter: 2015Q3

REPORT INFORMATION
  Report Type: Spontaneous
  Country: US (occurrence: US)
  Receive Date: 20150910
  Receipt Date: 20150910
  Transmission Date: 20151125
  Serious: No
  Sender: FDA-Public Use
  Company Number: US-PFIZER INC-2015288664

PATIENT
  Age: 60 Year
  Sex: Male
  Weight: 102 kg

DRUGS (3)
  1. LYRICA [Suspect]
     Active Substance: PREGABALIN
     Dosage: 50MG, ONCE IN THE MORNING ONCE IN THE EVENING
     Route: 048
  2. LYRICA [Suspect]
     Active Substance: PREGABALIN
     Indication: NEUROPATHY PERIPHERAL
     Dosage: 50MG ONCE AT NIGHT
     Route: 048
     Dates: start: 20150731
  3. CLOBAZAM [Concomitant]
     Active Substance: CLOBAZAM
     Indication: EPILEPSY
     Dosage: 20MG IN MORNING, 10MG AT NOON, 10MG AT 17:00, AND 10MG BETWEEN 19:00-20:00
     Route: 048

REACTIONS (1)
  - Drug ineffective [Not Recovered/Not Resolved]
